FAERS Safety Report 10015802 (Version 1)
Quarter: 2014Q1

REPORT INFORMATION
  Report Type: Spontaneous
  Country: US (occurrence: US)
  Receive Date: 20140317
  Receipt Date: 20140317
  Transmission Date: 20141002
  Serious: Yes (Hospitalization)
  Sender: FDA-Public Use
  Company Number: US-GLAXOSMITHKLINE-A1064121A

PATIENT
  Age: 66 Year
  Sex: Male

DRUGS (12)
  1. ADVAIR HFA [Suspect]
     Indication: CHRONIC OBSTRUCTIVE PULMONARY DISEASE
     Dosage: 1PUFF TWICE PER DAY
     Route: 055
     Dates: start: 2000
  2. VENTOLIN [Suspect]
     Indication: DYSPNOEA
     Dosage: 2PUFF TWICE PER DAY
     Route: 055
     Dates: start: 2010
  3. NEBULIZER [Concomitant]
  4. CPAP MACHINE [Concomitant]
  5. FLONASE [Concomitant]
  6. LASIX [Concomitant]
  7. POTASSIUM [Concomitant]
  8. DIGOXIN [Concomitant]
  9. ATENOLOL [Concomitant]
  10. SINGULAIR [Concomitant]
  11. FOSAMAX [Concomitant]
  12. WARFARIN [Concomitant]

REACTIONS (4)
  - Diabetes mellitus [Not Recovered/Not Resolved]
  - Asthenia [Not Recovered/Not Resolved]
  - Vision blurred [Not Recovered/Not Resolved]
  - Cataract [Not Recovered/Not Resolved]
